FAERS Safety Report 9026423 (Version 1)
Quarter: 2013Q1

REPORT INFORMATION
  Report Type: Spontaneous
  Country: FR (occurrence: FR)
  Receive Date: 20130123
  Receipt Date: 20130123
  Transmission Date: 20140127
  Serious: Yes (Hospitalization)
  Sender: FDA-Public Use
  Company Number: FR-JNJFOC-20130108566

PATIENT
  Age: 55 None
  Sex: Male

DRUGS (9)
  1. PREZISTA [Suspect]
     Indication: PRODUCT USED FOR UNKNOWN INDICATION
     Route: 048
     Dates: start: 20090113
  2. TRUVADA [Suspect]
     Indication: PRODUCT USED FOR UNKNOWN INDICATION
     Dosage: 200MG/245MG
     Route: 048
     Dates: start: 20090113
  3. ISENTRESS [Suspect]
     Indication: PRODUCT USED FOR UNKNOWN INDICATION
     Route: 048
     Dates: start: 20090113
  4. NORVIR [Suspect]
     Indication: PRODUCT USED FOR UNKNOWN INDICATION
     Route: 048
     Dates: start: 20090113
  5. FRACTAL [Concomitant]
     Route: 065
     Dates: start: 200703
  6. VALDOXAN (AGOMELATINE) [Concomitant]
     Dosage: INTRODUCED 2 YEARS AND A HALF BEFORE
     Route: 065
  7. LEXOMIL [Concomitant]
     Dosage: INTRODUCED 2 YEARS AND A HALF BEFORE
     Route: 065
  8. STILNOX [Concomitant]
     Dosage: INTRODUCED 1 YEAR BEFORE
     Route: 065
  9. ATHYMIL [Concomitant]
     Dosage: INTRODUCED 1 YEAR BEFORE
     Route: 065

REACTIONS (3)
  - Deafness [Recovering/Resolving]
  - General physical health deterioration [Unknown]
  - Malnutrition [Unknown]
